FAERS Safety Report 19686287 (Version 1)
Quarter: 2021Q3

REPORT INFORMATION
  Report Type: Spontaneous
  Country: US (occurrence: US)
  Receive Date: 20210811
  Receipt Date: 20210811
  Transmission Date: 20211014
  Serious: No
  Sender: FDA-Public Use
  Company Number: US-KYOWAKIRIN-2021BKK013490

PATIENT

DRUGS (1)
  1. SANCUSO [Suspect]
     Active Substance: GRANISETRON
     Indication: IMPAIRED GASTRIC EMPTYING
     Dosage: 1 PATCH
     Route: 065
     Dates: start: 20210725, end: 20210726

REACTIONS (3)
  - Product dose omission issue [Unknown]
  - Product adhesion issue [Unknown]
  - Product use in unapproved indication [Unknown]

NARRATIVE: CASE EVENT DATE: 20210725
